FAERS Safety Report 9549890 (Version 1)
Quarter: 2013Q3

REPORT INFORMATION
  Report Type: Spontaneous
  Country: US (occurrence: US)
  Receive Date: 20130924
  Receipt Date: 20130924
  Transmission Date: 20140515
  Serious: Yes (Hospitalization)
  Sender: FDA-Public Use
  Company Number: US-B.I. PHARMACEUTICALS,INC./RIDGEFIELD-2013-BI-29319BP

PATIENT
  Age: 8 Decade
  Sex: Female

DRUGS (1)
  1. TRADJENTA [Suspect]
     Indication: DIABETES MELLITUS INADEQUATE CONTROL

REACTIONS (1)
  - Pancreatitis [Recovered/Resolved]
